FAERS Safety Report 8337031-5 (Version None)
Quarter: 2012Q2

REPORT INFORMATION
  Report Type: 
  Country: None (occurrence: None)
  Receive Date: 20120504
  Receipt Date: 20120423
  Transmission Date: 20120825
  Serious: Yes (Other)
  Sender: FDA-Public Use
  Company Number: US-JNJFOC-20120213117

PATIENT
  Sex: Female
  Weight: 93.1 kg

DRUGS (3)
  1. MERCAPTOPURINE [Concomitant]
     Indication: CROHN'S DISEASE
     Route: 065
     Dates: start: 20080801, end: 20090820
  2. REMICADE [Suspect]
     Indication: CROHN'S DISEASE
     Route: 042
     Dates: start: 20090307
  3. REMICADE [Suspect]
     Route: 042
     Dates: start: 20091221

REACTIONS (3)
  - PROTEIN-LOSING GASTROENTEROPATHY [None]
  - DISTAL ILEAL OBSTRUCTION SYNDROME [None]
  - EOSINOPHILIA [None]
